FAERS Safety Report 8188480-X (Version None)
Quarter: 2012Q1

REPORT INFORMATION
  Report Type: 
  Country: None (occurrence: None)
  Receive Date: 20120306
  Receipt Date: 20120228
  Transmission Date: 20120608
  Serious: Yes (Death, Other)
  Sender: FDA-Public Use
  Company Number: PHHY2012NL003883

PATIENT
  Sex: Female
  Weight: 78 kg

DRUGS (4)
  1. ZOMETA [Suspect]
     Dosage: 4 MG/100 ML, ONCE PER 28 DAYS
     Dates: start: 20111201, end: 20111228
  2. DOCETAXEL [Concomitant]
     Dosage: 183 MG, UNK
     Route: 042
     Dates: start: 20111229
  3. ZOMETA [Suspect]
     Indication: METASTASES TO BONE
     Dosage: 4 MG/100 ML, ONCE PER 28 DAYS
     Dates: start: 20110902
  4. FUROSEMIDE [Concomitant]
     Dosage: 20 MG, UNK

REACTIONS (5)
  - SEPSIS [None]
  - DEATH [None]
  - MULTI-ORGAN FAILURE [None]
  - CARDIOMYOPATHY [None]
  - TERMINAL STATE [None]
